FAERS Safety Report 6395312-9 (Version None)
Quarter: 2009Q4

REPORT INFORMATION
  Report Type: 
  Country: None (occurrence: None)
  Receive Date: 20091009
  Receipt Date: 20091006
  Transmission Date: 20100525
  Serious: Yes (Other)
  Sender: FDA-Public Use
  Company Number: B0483001A

PATIENT
  Sex: Male
  Weight: 20 kg

DRUGS (5)
  1. ABACAVIR [Suspect]
     Indication: HIV INFECTION
     Dates: start: 20070706
  2. 3TC [Suspect]
     Indication: HIV INFECTION
     Dates: start: 20070706
  3. EFAVIRENZ [Suspect]
     Indication: HIV INFECTION
     Dosage: 300MG PER DAY
     Dates: start: 20070706
  4. COTRIM [Suspect]
     Indication: DRUG USE FOR UNKNOWN INDICATION
     Dates: start: 20070622
  5. MULTI-VITAMINS [Concomitant]

REACTIONS (3)
  - HYPERSENSITIVITY [None]
  - PYREXIA [None]
  - RASH [None]
